FAERS Safety Report 22381508 (Version 1)
Quarter: 2023Q2

REPORT INFORMATION
  Report Type: Spontaneous
  Country: US (occurrence: US)
  Receive Date: 20230530
  Receipt Date: 20230530
  Transmission Date: 20230721
  Serious: No
  Sender: FDA-Public Use
  Company Number: US-GLAXOSMITHKLINE-USCH2023024995

PATIENT

DRUGS (1)
  1. ADVIL [Suspect]
     Active Substance: IBUPROFEN
     Indication: Product used for unknown indication
     Dosage: 1 DF

REACTIONS (4)
  - Oropharyngeal discomfort [Unknown]
  - Dyspepsia [Unknown]
  - Nausea [Unknown]
  - Expired product administered [Unknown]

NARRATIVE: CASE EVENT DATE: 20230524
